FAERS Safety Report 15937390 (Version 3)
Quarter: 2019Q1

REPORT INFORMATION
  Report Type: Spontaneous
  Country: IN (occurrence: IN)
  Receive Date: 20190208
  Receipt Date: 20190307
  Transmission Date: 20190417
  Serious: Yes (Hospitalization, Other)
  Sender: FDA-Public Use
  Company Number: IN-TORRENT-00002122

PATIENT
  Age: 49 Year
  Sex: Female

DRUGS (1)
  1. TELMISARTAN AND AMLODIPINE [Suspect]
     Active Substance: AMLODIPINE BESYLATE\TELMISARTAN
     Indication: ESSENTIAL HYPERTENSION
     Dosage: 10 YEARS
     Dates: start: 201612

REACTIONS (2)
  - Linear IgA disease [Recovered/Resolved]
  - Koebner phenomenon [Recovered/Resolved]

NARRATIVE: CASE EVENT DATE: 201612
